FAERS Safety Report 18227934 (Version 1)
Quarter: 2020Q3

REPORT INFORMATION
  Report Type: Spontaneous
  Country: CN (occurrence: CN)
  Receive Date: 20200903
  Receipt Date: 20200903
  Transmission Date: 20201103
  Serious: Yes (Hospitalization, Other)
  Sender: FDA-Public Use
  Company Number: CN-BAYER-2020-182561

PATIENT
  Age: 78 Year
  Sex: Female
  Weight: 56 kg

DRUGS (2)
  1. GLUCOBAY [Suspect]
     Active Substance: ACARBOSE
     Indication: TYPE 2 DIABETES MELLITUS
     Dosage: 50 MG, TID
     Route: 048
     Dates: start: 20200702, end: 20200726
  2. PIOGLITAZONE HYDROCHLORIDE. [Suspect]
     Active Substance: PIOGLITAZONE HYDROCHLORIDE
     Dosage: 30 MG, QD
     Route: 048
     Dates: start: 20200702, end: 20200726

REACTIONS (8)
  - Asthenia [None]
  - Nausea [Recovering/Resolving]
  - Vomiting [Recovering/Resolving]
  - Gastric ulcer [Recovering/Resolving]
  - Abdominal distension [None]
  - Haematemesis [None]
  - Decreased appetite [None]
  - Electrolyte imbalance [None]

NARRATIVE: CASE EVENT DATE: 20200716
